FAERS Safety Report 8381350-3 (Version None)
Quarter: 2012Q2

REPORT INFORMATION
  Report Type: 
  Country: None (occurrence: None)
  Receive Date: 20120523
  Receipt Date: 20120521
  Transmission Date: 20120825
  Serious: Yes (Other)
  Sender: FDA-Public Use
  Company Number: GB-PFIZER INC-2012069207

PATIENT
  Age: 29 Year
  Sex: Female

DRUGS (1)
  1. IBUPROFEN [Suspect]
     Indication: HEADACHE
     Dosage: 400 MG, UNK
     Route: 048
     Dates: start: 20120221, end: 20120101

REACTIONS (4)
  - EATING DISORDER [None]
  - CHOKING [None]
  - FOREIGN BODY [None]
  - OROPHARYNGEAL PAIN [None]
